FAERS Safety Report 11742966 (Version 8)
Quarter: 2017Q2

REPORT INFORMATION
  Report Type: Spontaneous
  Country: US (occurrence: US)
  Receive Date: 20151116
  Receipt Date: 20170622
  Transmission Date: 20170829
  Serious: Yes (Hospitalization)
  Sender: FDA-Public Use
  Company Number: US-ACTELION PHARMACEUTICALS US, INC.-A-US2015-111337

PATIENT
  Age: 73 Year
  Sex: Female

DRUGS (3)
  1. INTEDANIB [Concomitant]
     Dosage: 150 MG, BID
  2. TRACLEER [Suspect]
     Active Substance: BOSENTAN
     Indication: PULMONARY ARTERIAL HYPERTENSION
     Dosage: 125 MG, BID
     Route: 048
     Dates: start: 20140117
  3. OFEV [Concomitant]
     Active Substance: NINTEDANIB

REACTIONS (13)
  - Pulmonary fibrosis [Unknown]
  - Sneezing [Unknown]
  - Viral upper respiratory tract infection [Unknown]
  - Influenza [Unknown]
  - Oropharyngeal pain [Unknown]
  - Cough [Unknown]
  - Dizziness [Recovering/Resolving]
  - Nausea [Recovering/Resolving]
  - Concomitant disease aggravated [Unknown]
  - Diarrhoea [Recovering/Resolving]
  - Dyspnoea [Unknown]
  - Vomiting [Unknown]
  - Asthenia [Unknown]
